FAERS Safety Report 10034488 (Version 1)
Quarter: 2014Q1

REPORT INFORMATION
  Report Type: Spontaneous
  Country: US (occurrence: None)
  Receive Date: 20140324
  Receipt Date: 20140324
  Transmission Date: 20141002
  Serious: Yes (Other)
  Sender: FDA-Public Use
  Company Number: None

PATIENT
  Sex: 0

DRUGS (2)
  1. PAROXETINE [Suspect]
     Indication: DEPRESSION
     Dosage: 2 DOSE ONCE DAILY TAKEN BY MOUTH
     Route: 048
     Dates: start: 20140226, end: 20140317
  2. PAROXETINE [Suspect]
     Indication: ANXIETY
     Dosage: 2 DOSE ONCE DAILY TAKEN BY MOUTH
     Route: 048
     Dates: start: 20140226, end: 20140317

REACTIONS (6)
  - Product quality issue [None]
  - Product substitution issue [None]
  - Headache [None]
  - Dizziness [None]
  - Nausea [None]
  - Product formulation issue [None]
